FAERS Safety Report 24195807 (Version 1)
Quarter: 2024Q3

REPORT INFORMATION
  Report Type: Spontaneous
  Country: US (occurrence: None)
  Receive Date: 20240809
  Receipt Date: 20240809
  Transmission Date: 20241016
  Serious: No
  Sender: Public
  Company Number: None

PATIENT
  Age: 44 Year
  Sex: Female

DRUGS (1)
  1. RINVOQ [Suspect]
     Active Substance: UPADACITINIB
     Indication: Dermatitis atopic
     Dosage: OTHER QUANTITY : TAKE 1 TABLET;?FREQUENCY : DAILY;?
     Route: 048
     Dates: start: 202402

REACTIONS (1)
  - Perioral dermatitis [None]
